FAERS Safety Report 5320666-1 (Version None)
Quarter: 2007Q2

REPORT INFORMATION
  Report Type: 
  Country: None (occurrence: None)
  Receive Date: 20070509
  Receipt Date: 20070430
  Transmission Date: 20071010
  Serious: Yes (Hospitalization)
  Sender: FDA-Public Use
  Company Number: IE-PFIZER INC-2007030485

PATIENT
  Sex: Male
  Weight: 72 kg

DRUGS (3)
  1. CHAMPIX [Suspect]
     Indication: EX-SMOKER
     Route: 048
     Dates: start: 20070125, end: 20070224
  2. LIPITOR [Suspect]
     Indication: BLOOD CHOLESTEROL INCREASED
     Route: 048
     Dates: start: 20060530, end: 20070224
  3. AMOXICILLIN + CLAVULANATE POTASSIUM [Concomitant]
     Indication: LOWER RESPIRATORY TRACT INFECTION
     Route: 048
     Dates: start: 20070215, end: 20070222

REACTIONS (4)
  - ABDOMINAL PAIN [None]
  - HEPATITIS [None]
  - JAUNDICE [None]
  - NAUSEA [None]
